FAERS Safety Report 8506401-4 (Version None)
Quarter: 2012Q3

REPORT INFORMATION
  Report Type: 
  Country: None (occurrence: None)
  Receive Date: 20120712
  Receipt Date: 20120706
  Transmission Date: 20120928
  Serious: Yes (Hospitalization, Other)
  Sender: FDA-Public Use
  Company Number: US-ROCHE-458676

PATIENT
  Sex: Male
  Weight: 68 kg

DRUGS (2)
  1. ACCUTANE [Suspect]
     Route: 048
     Dates: start: 19860210, end: 19870929
  2. ACCUTANE [Suspect]
     Indication: ACNE PUSTULAR
     Dosage: UNSPECIFIED DATE PRIOR TO 13 AUGUST 1985
     Route: 048

REACTIONS (21)
  - RENAL FAILURE ACUTE [None]
  - COLONIC POLYP [None]
  - TYPE 2 DIABETES MELLITUS [None]
  - COLITIS [None]
  - NASAL SEPTUM DEVIATION [None]
  - IRON DEFICIENCY ANAEMIA [None]
  - DEHYDRATION [None]
  - CHRONIC HEPATIC FAILURE [None]
  - VARICES OESOPHAGEAL [None]
  - HEPATIC CIRRHOSIS [None]
  - ACUTE PRERENAL FAILURE [None]
  - CHOLANGITIS [None]
  - CROHN'S DISEASE [None]
  - ILEITIS [None]
  - NASAL TURBINATE HYPERTROPHY [None]
  - CHOLANGITIS SCLEROSING [None]
  - PITUITARY TUMOUR BENIGN [None]
  - THROMBOCYTOPENIA [None]
  - OSTEOPENIA [None]
  - WOUND [None]
  - COLITIS ULCERATIVE [None]
